FAERS Safety Report 5104260-3 (Version None)
Quarter: 2006Q3

REPORT INFORMATION
  Report Type: 
  Country: None (occurrence: None)
  Receive Date: 20060914
  Receipt Date: 20060629
  Transmission Date: 20061208
  Serious: Yes (Other)
  Sender: FDA-Public Use
  Company Number: PHBS2006BR09916

PATIENT
  Age: 11 Year
  Sex: Male
  Weight: 17.687 kg

DRUGS (3)
  1. ZADITEN [Suspect]
     Indication: CONJUNCTIVITIS ALLERGIC
     Dosage: 1 DRP, BID
     Dates: start: 20060105
  2. BUDECORT ^ASTRA^ [Concomitant]
     Dosage: UNK, QD
     Route: 045
     Dates: start: 20060824
  3. PRED FORTE [Concomitant]

REACTIONS (6)
  - ABDOMINAL PAIN UPPER [None]
  - CONJUNCTIVITIS ALLERGIC [None]
  - CONSTIPATION [None]
  - EYE PAIN [None]
  - PHOTOPHOBIA [None]
  - PNEUMONIA [None]
